FAERS Safety Report 6170072-5 (Version None)
Quarter: 2009Q2

REPORT INFORMATION
  Report Type: 
  Country: None (occurrence: None)
  Receive Date: 20090428
  Receipt Date: 20090421
  Transmission Date: 20091009
  Serious: Yes (Other)
  Sender: FDA-Public Use
  Company Number: A0779660A

PATIENT
  Age: 70 Year
  Sex: Female

DRUGS (4)
  1. ADVAIR HFA [Suspect]
     Indication: ASTHMA
     Dosage: 1PUFF VARIABLE DOSE
     Route: 055
     Dates: start: 20060201
  2. ALBUTEROL [Suspect]
     Indication: DRUG USE FOR UNKNOWN INDICATION
     Route: 065
  3. SINGULAIR [Suspect]
     Indication: DRUG USE FOR UNKNOWN INDICATION
     Route: 065
     Dates: start: 20040101
  4. XALATAN [Concomitant]

REACTIONS (6)
  - ARTHRITIS [None]
  - CATARACT [None]
  - DRUG EFFECT DECREASED [None]
  - HERPES ZOSTER [None]
  - RENAL CYST [None]
  - THROAT IRRITATION [None]
